FAERS Safety Report 9199616 (Version 1)
Quarter: 2013Q1

REPORT INFORMATION
  Report Type: Spontaneous
  Country: AT (occurrence: AT)
  Receive Date: 20130329
  Receipt Date: 20130329
  Transmission Date: 20140127
  Serious: Yes (Hospitalization)
  Sender: FDA-Public Use
  Company Number: AT-SANOFI-AVENTIS-2013SA030582

PATIENT
  Age: 75 Year
  Sex: Male

DRUGS (4)
  1. ZALTRAP [Suspect]
     Indication: COLORECTAL CANCER
     Route: 042
     Dates: start: 20130222, end: 20130222
  2. 5-FU [Concomitant]
  3. IRINOTECAN [Concomitant]
  4. LEUCOVORIN [Concomitant]

REACTIONS (1)
  - Angiopathy [Unknown]
